FAERS Safety Report 21315223 (Version 1)
Quarter: 2022Q3

REPORT INFORMATION
  Report Type: Spontaneous
  Country: CN (occurrence: None)
  Receive Date: 20220909
  Receipt Date: 20220909
  Transmission Date: 20221026
  Serious: Yes (Other)
  Sender: FDA-Public Use
  Company Number: 2022A309810

PATIENT
  Age: 45 Year
  Sex: Female

DRUGS (5)
  1. OSIMERTINIB [Suspect]
     Active Substance: OSIMERTINIB
     Indication: Non-small cell lung cancer metastatic
     Route: 048
  2. BEVACIZUMAB [Concomitant]
     Active Substance: BEVACIZUMAB
     Indication: Non-small cell lung cancer metastatic
     Route: 065
  3. ERLOTINIB [Concomitant]
     Active Substance: ERLOTINIB
     Indication: Non-small cell lung cancer metastatic
     Route: 065
  4. CRIZOTINIB [Concomitant]
     Active Substance: CRIZOTINIB
     Indication: Non-small cell lung cancer metastatic
     Route: 065
  5. AUMOLERTINIB [Concomitant]
     Active Substance: AUMOLERTINIB
     Indication: Non-small cell lung cancer metastatic
     Route: 065

REACTIONS (3)
  - Malignant neoplasm progression [Unknown]
  - Drug resistance [Unknown]
  - Acquired gene mutation [Unknown]
